FAERS Safety Report 4305550-4 (Version None)
Quarter: 2004Q1

REPORT INFORMATION
  Report Type: 
  Country: None (occurrence: None)
  Receive Date: 20040226
  Receipt Date: 20031121
  Transmission Date: 20041129
  Serious: No
  Sender: FDA-Public Use
  Company Number: US-BRISTOL-MYERS SQUIBB COMPANY-12442042

PATIENT
  Age: 15 Year
  Sex: Female

DRUGS (2)
  1. ABILIFY [Suspect]
     Indication: BIPOLAR DISORDER
     Dosage: DOSE DECREASED TO 5 MG DAILY AND THEN DISCONTINUED.
     Route: 048
     Dates: start: 20030916, end: 20031029
  2. CLONIDINE [Concomitant]
     Dosage: QHS

REACTIONS (2)
  - COLITIS ULCERATIVE [None]
  - EXTRAPYRAMIDAL DISORDER [None]
